FAERS Safety Report 18509430 (Version 2)
Quarter: 2020Q4

REPORT INFORMATION
  Report Type: Spontaneous
  Country: US (occurrence: US)
  Receive Date: 20201117
  Receipt Date: 20201209
  Transmission Date: 20210114
  Serious: No
  Sender: FDA-Public Use
  Company Number: US-ASTRAZENECA-2020SF48586

PATIENT
  Age: 28356 Day
  Sex: Male

DRUGS (1)
  1. BYDUREON BCISE [Suspect]
     Active Substance: EXENATIDE
     Dosage: ONCE A WEEK
     Route: 058
     Dates: start: 2019

REACTIONS (4)
  - Device leakage [Unknown]
  - Injection site nodule [Unknown]
  - Incorrect dose administered by device [Unknown]
  - Injection site pruritus [Unknown]

NARRATIVE: CASE EVENT DATE: 20201022
